FAERS Safety Report 6890206 (Version 3)
Quarter: 2015Q3

REPORT INFORMATION
  Report Type: Spontaneous
  Country: FR (occurrence: FR)
  Receive Date: 20090123
  Receipt Date: 20150811
  Transmission Date: 20151125
  Serious: Yes (Death)
  Sender: FDA-Public Use
  Company Number: FR-BAYER-200911369GPV

PATIENT
  Age: 62 Year
  Sex: Female
  Weight: 74 kg

DRUGS (50)
  1. INIPOMP [Suspect]
     Active Substance: PANTOPRAZOLE SODIUM
     Dosage: 20 MG (DAILY DOSE), QD, ORAL
     Route: 048
     Dates: start: 20081113
  2. THYMOGLOBULINE [Concomitant]
     Active Substance: LAPINE T-LYMPHOCYTE IMMUNE GLOBULIN
     Indication: STEM CELL TRANSPLANT
  3. ANAFRANIL [Concomitant]
     Active Substance: CLOMIPRAMINE HYDROCHLORIDE
     Indication: DEPRESSION
  4. LASILIX [Concomitant]
     Active Substance: FUROSEMIDE
     Indication: CONGESTIVE CARDIOMYOPATHY
     Dosage: 250 MG (DAILY DOSE), QD,
     Dates: start: 20081120, end: 20081124
  5. TAZOCILLINE [Suspect]
     Active Substance: PIPERACILLIN SODIUM\TAZOBACTAM SODIUM
     Indication: KLEBSIELLA INFECTION
     Route: 065
     Dates: start: 20081120, end: 20081128
  6. ANAFRANIL [Concomitant]
     Active Substance: CLOMIPRAMINE HYDROCHLORIDE
     Indication: ANXIETY
     Dosage: 37.5 MG (DAILY DOSE), HS, ORAL
     Route: 048
  7. TEMESTA [Concomitant]
     Active Substance: LORAZEPAM
     Indication: ANXIETY
     Route: 048
     Dates: start: 20081113
  8. CORDARONE [Concomitant]
     Active Substance: AMIODARONE HYDROCHLORIDE
     Indication: ARRHYTHMIA
     Route: 042
     Dates: start: 20081124, end: 20081128
  9. ZOPHREN [Concomitant]
     Active Substance: ONDANSETRON
     Indication: PROPHYLAXIS
     Dosage: 8 MG (DAILY DOSE), , UNKNOWN
     Route: 065
     Dates: start: 20081115, end: 20081119
  10. FORLAX [Concomitant]
     Active Substance: POLYETHYLENE GLYCOL 4000
     Dosage: 2 DF (DAILY DOSE), PRN, ORAL
     Route: 048
  11. VANCOMYCIN [Concomitant]
     Active Substance: VANCOMYCIN
     Dosage: 250 MG FREEZE-DRIED PRODUCT OF 250 ML
     Route: 061
     Dates: start: 20081115
  12. SMECTA [SMECTITE] [Concomitant]
     Indication: DIARRHOEA
     Dosage: 2 PACKS
     Route: 065
     Dates: start: 20081123
  13. FLUDARABINE PHOSPHATE (I.V.) [Suspect]
     Active Substance: FLUDARABINE PHOSPHATE
     Indication: BONE MARROW CONDITIONING REGIMEN
     Dosage: 52 MG (DAILY DOSE), QD, INTRAVENOUS
     Route: 042
     Dates: start: 20081115, end: 20081119
  14. TERCIAN [Concomitant]
     Active Substance: CYAMEMAZINE
     Indication: ANXIETY
     Dosage: 25 GTT (DAILY DOSE), QD, ORAL
     Route: 048
  15. ZYVOXID [Concomitant]
     Active Substance: LINEZOLID
     Indication: KLEBSIELLA INFECTION
     Route: 065
     Dates: start: 20081128
  16. MOPRAL [Concomitant]
     Active Substance: OMEPRAZOLE SODIUM
     Dosage: 1 AMPOULE/DAY
     Route: 042
     Dates: start: 20081120
  17. POLARAMINE [Concomitant]
     Active Substance: DEXCHLORPHENIRAMINE MALEATE
     Indication: PREMEDICATION
     Route: 065
     Dates: start: 20081119, end: 20081120
  18. CIFLOX [Suspect]
     Active Substance: CIPROFLOXACIN
     Indication: KLEBSIELLA INFECTION
     Dosage: 200 MG/100 ML (UNIT DOSE)
     Route: 065
     Dates: start: 20081124, end: 20081128
  19. THYMOGLOBULINE [Concomitant]
     Active Substance: LAPINE T-LYMPHOCYTE IMMUNE GLOBULIN
     Indication: BONE MARROW CONDITIONING REGIMEN
     Dosage: 185 MG (DAILY DOSE), QD, UNKNOWN
     Route: 065
     Dates: start: 20081119, end: 20081120
  20. TERCIAN [Concomitant]
     Active Substance: CYAMEMAZINE
     Indication: DEPRESSION
  21. TEMESTA [Concomitant]
     Active Substance: LORAZEPAM
     Indication: DEPRESSION
  22. NOCTRAN 10 [Concomitant]
     Active Substance: ACEPROMAZINE\ACEPROMETAZINE\CLORAZEPATE DIPOTASSIUM
     Indication: DEPRESSION
  23. DIGOXINE [Concomitant]
     Active Substance: DIGOXIN
     Indication: ARRHYTHMIA
     Route: 065
  24. MOPRAL [Concomitant]
     Active Substance: OMEPRAZOLE SODIUM
     Route: 048
  25. PRIMPERAN [Concomitant]
     Active Substance: METOCLOPRAMIDE HYDROCHLORIDE
     Indication: PROPHYLAXIS
     Dosage: 2 AMPOULES/DAY
     Route: 042
     Dates: start: 20081115, end: 20081119
  26. SOLU-MEDROL [Concomitant]
     Active Substance: METHYLPREDNISOLONE SODIUM SUCCINATE
     Indication: PREMEDICATION
     Route: 065
     Dates: start: 20081119, end: 20081120
  27. DOBUTREX [Concomitant]
     Active Substance: DOBUTAMINE HYDROCHLORIDE
     Indication: ARRHYTHMIA
     Dosage: 250 MG (DAILY DOSE), , UNKNOWN
     Route: 065
     Dates: start: 20081124, end: 20081128
  28. FLUDARABINE PHOSPHATE (I.V.) [Suspect]
     Active Substance: FLUDARABINE PHOSPHATE
     Indication: STEM CELL TRANSPLANT
  29. ZYLORIC [Suspect]
     Active Substance: ALLOPURINOL
     Indication: HYPERURICAEMIA
     Route: 048
     Dates: start: 20081120
  30. CYCLOSPORINE. [Concomitant]
     Active Substance: CYCLOSPORINE
     Indication: PROPHYLAXIS AGAINST TRANSPLANT REJECTION
     Dosage: 4 DOSES
     Route: 065
     Dates: start: 20081122, end: 20081202
  31. TAREG [Concomitant]
     Active Substance: VALSARTAN
     Indication: CONGESTIVE CARDIOMYOPATHY
     Route: 048
  32. FASTURTEC [Suspect]
     Active Substance: RASBURICASE
     Indication: PROPHYLAXIS
     Dosage: 15 MG (DAILY DOSE), QD, INTRAVENOUS
     Route: 042
     Dates: start: 20081114, end: 20081114
  33. TOPALGIC [TRAMADOL HYDROCHLORIDE] [Suspect]
     Active Substance: TRAMADOL HYDROCHLORIDE
     Dosage: 50 MG (DAILY DOSE), QD, INTRAVENOUS
     Route: 042
     Dates: start: 20081119
  34. VFEND [Concomitant]
     Active Substance: VORICONAZOLE
     Route: 065
     Dates: start: 200807
  35. TAREG [Concomitant]
     Active Substance: VALSARTAN
     Indication: CARDIAC FAILURE
  36. LASILIX [Concomitant]
     Active Substance: FUROSEMIDE
     Indication: CARDIAC FAILURE
  37. IMODIUM [Concomitant]
     Active Substance: LOPERAMIDE HYDROCHLORIDE
     Indication: DIARRHOEA
     Route: 065
     Dates: start: 20081123
  38. TIENAM [Concomitant]
     Active Substance: CILASTATIN SODIUM\IMIPENEM
     Indication: KLEBSIELLA INFECTION
     Route: 065
     Dates: start: 20081128
  39. BETAGAN [Concomitant]
     Active Substance: LEVOBUNOLOL HYDROCHLORIDE
     Dosage: 1 GTT (DAILY DOSE), QD,
     Dates: start: 20081113
  40. VITAMINE A DULCIS [Concomitant]
     Dosage: 2 DF (DAILY DOSE), BID, UNKNOWN
     Route: 065
     Dates: start: 20081113
  41. FUNGIZONE [Concomitant]
     Active Substance: AMPHOTERICIN B
     Indication: PROPHYLAXIS
     Route: 048
     Dates: start: 20081115
  42. ZOVIRAX [Concomitant]
     Active Substance: ACYCLOVIR
     Dosage: VIA PERFUSOR
     Route: 042
     Dates: start: 20081122
  43. LOXEN [Concomitant]
     Active Substance: NICARDIPINE HYDROCHLORIDE
     Dosage: 50 MG (DAILY DOSE), , UNKNOWN
     Route: 065
     Dates: start: 20081125
  44. NOCTRAN 10 [Concomitant]
     Active Substance: ACEPROMAZINE\ACEPROMETAZINE\CLORAZEPATE DIPOTASSIUM
     Indication: ANXIETY
     Dosage: 1 DF (DAILY DOSE), HS, ORAL
     Route: 048
  45. DETENSIEL [Concomitant]
     Active Substance: BISOPROLOL FUMARATE
     Indication: CARDIAC FAILURE
  46. VALIUM [Concomitant]
     Active Substance: DIAZEPAM
     Route: 065
     Dates: start: 200811
  47. METHOTREXATE [Suspect]
     Active Substance: METHOTREXATE
     Indication: PROPHYLAXIS AGAINST TRANSPLANT REJECTION
     Dosage: 4 DOSES
     Route: 065
     Dates: start: 20081122, end: 20081202
  48. DETENSIEL [Concomitant]
     Active Substance: BISOPROLOL FUMARATE
     Indication: CONGESTIVE CARDIOMYOPATHY
     Dosage: 10 MG (DAILY DOSE), QD, ORAL
     Route: 048
  49. FLAGYL [Concomitant]
     Active Substance: METRONIDAZOLE\METRONIDAZOLE HYDROCHLORIDE
     Indication: DIARRHOEA
     Dosage: 500MG/100ML
     Route: 065
     Dates: start: 20081125
  50. DAFALGAN [Concomitant]
     Active Substance: ACETAMINOPHEN
     Dosage: 1500 MG (DAILY DOSE), TID, ORAL
     Route: 048

REACTIONS (1)
  - Toxic epidermal necrolysis [Fatal]

NARRATIVE: CASE EVENT DATE: 20081125
